FAERS Safety Report 4611759-2 (Version None)
Quarter: 2005Q2

REPORT INFORMATION
  Report Type: 
  Country: None (occurrence: None)
  Receive Date: 20050308
  Receipt Date: 20041207
  Transmission Date: 20051028
  Serious: Yes (Other)
  Sender: FDA-Public Use
  Company Number: 2004UW25008

PATIENT
  Age: 68 Year
  Sex: Female
  Weight: 87.089 kg

DRUGS (4)
  1. CRESTOR [Suspect]
     Indication: HYPERCHOLESTEROLAEMIA
     Dosage: 10 MG PO
     Route: 048
     Dates: start: 20040601
  2. INSULIN [Concomitant]
  3. PRANDIN [Concomitant]
  4. ACEON [Concomitant]

REACTIONS (2)
  - NECK PAIN [None]
  - SINUS CONGESTION [None]
